FAERS Safety Report 4830657-2 (Version None)
Quarter: 2005Q4

REPORT INFORMATION
  Report Type: 
  Country: None (occurrence: None)
  Receive Date: 20051117
  Receipt Date: 20050929
  Transmission Date: 20060501
  Serious: Yes (Death, Hospitalization)
  Sender: FDA-Public Use
  Company Number: US-ABBOTT-05P-163-0312384-00

PATIENT
  Sex: Female
  Weight: 48.578 kg

DRUGS (6)
  1. SYNTHROID [Suspect]
     Indication: HYPOTHYROIDISM
     Dates: start: 20041223, end: 20050411
  2. AMIODARONE [Concomitant]
     Indication: DRUG USE FOR UNKNOWN INDICATION
  3. ASCORBIC ACID [Concomitant]
     Indication: DRUG USE FOR UNKNOWN INDICATION
  4. ASPIRIN [Concomitant]
     Indication: DRUG USE FOR UNKNOWN INDICATION
  5. TRINSICON [Concomitant]
     Indication: DRUG USE FOR UNKNOWN INDICATION
  6. DIGOXIN [Concomitant]
     Indication: DRUG USE FOR UNKNOWN INDICATION

REACTIONS (4)
  - BRAIN CANCER METASTATIC [None]
  - LEUKOCYTOSIS [None]
  - LOBAR PNEUMONIA [None]
  - LUNG ADENOCARCINOMA [None]
